FAERS Safety Report 8036111-1 (Version None)
Quarter: 2012Q1

REPORT INFORMATION
  Report Type: 
  Country: None (occurrence: None)
  Receive Date: 20120106
  Receipt Date: 20111214
  Transmission Date: 20120608
  Serious: Yes (Hospitalization)
  Sender: FDA-Public Use
  Company Number: 2011SP059363

PATIENT
  Age: 53 Year
  Sex: Female

DRUGS (4)
  1. RIBAVIRIN [Suspect]
     Indication: PRODUCT USED FOR UNKNOWN INDICATION
     Dosage: 1000 MG;QD
  2. PEG-INTRON [Suspect]
     Indication: PRODUCT USED FOR UNKNOWN INDICATION
     Dosage: 80 MCG;QW
  3. BOCEPREVIR (SCH-503034) (200 MG) [Suspect]
     Indication: FIBROSIS
     Dosage: 800 MG;TID;PO
     Route: 048
     Dates: start: 20111202
  4. BOCEPREVIR (SCH-503034) (200 MG) [Suspect]
     Indication: HEPATITIS C
     Dosage: 800 MG;TID;PO
     Route: 048
     Dates: start: 20111202

REACTIONS (2)
  - ANAEMIA [None]
  - GASTRITIS EROSIVE [None]
